FAERS Safety Report 25633479 (Version 2)
Quarter: 2025Q3

REPORT INFORMATION
  Report Type: Spontaneous
  Country: US (occurrence: US)
  Receive Date: 20250801
  Receipt Date: 20250812
  Transmission Date: 20251021
  Serious: No
  Sender: SUNOVION
  Company Number: US-SMPA-2025SPA009665AA

PATIENT
  Age: 47 Year
  Sex: Female

DRUGS (1)
  1. GEMTESA [Suspect]
     Active Substance: VIBEGRON
     Indication: Product used for unknown indication
     Route: 048

REACTIONS (4)
  - Urinary incontinence [Unknown]
  - Pollakiuria [Unknown]
  - Micturition urgency [Unknown]
  - Inappropriate schedule of product administration [Unknown]
